FAERS Safety Report 6580673-8 (Version None)
Quarter: 2010Q1

REPORT INFORMATION
  Report Type: 
  Country: None (occurrence: None)
  Receive Date: 20100212
  Receipt Date: 20100201
  Transmission Date: 20100710
  Serious: Yes (Hospitalization)
  Sender: FDA-Public Use
  Company Number: TR-PFIZER INC-2010013532

PATIENT
  Age: 49 Year
  Sex: Male

DRUGS (2)
  1. TRANEXAMIC ACID [Suspect]
     Indication: PROPHYLAXIS
     Dosage: 20 MG/KG, 1X/DAY
  2. FACTOR VIII, RECOMBINANT [Suspect]
     Dosage: 40 IU/KG, UNK

REACTIONS (1)
  - MYOCARDIAL INFARCTION [None]
